FAERS Safety Report 4411431-8 (Version None)
Quarter: 2004Q3

REPORT INFORMATION
  Report Type: 
  Country: None (occurrence: None)
  Receive Date: 20040727
  Receipt Date: 20040712
  Transmission Date: 20050211
  Serious: Yes (Other)
  Sender: FDA-Public Use
  Company Number: 2004-DE-03812GD

PATIENT
  Sex: Female

DRUGS (3)
  1. NEVIRAPINE (NEVIRAPINE) (NR) (NEVIRAPINE) [Suspect]
     Indication: HIV INFECTION
  2. DIDANOSINE (DIDANOSINE) (NR) [Suspect]
     Indication: HIV INFECTION
     Dosage: DOSE ADJUSTED FOR WEIGHT
  3. LAMIVUDINE [Suspect]
     Indication: HIV INFECTION

REACTIONS (1)
  - PANCREATITIS ACUTE [None]
